FAERS Safety Report 10388098 (Version 2)
Quarter: 2014Q3

REPORT INFORMATION
  Report Type: Report from Study
  Country: BR (occurrence: BR)
  Receive Date: 20140815
  Receipt Date: 20140901
  Transmission Date: 20150326
  Serious: Yes (Other)
  Sender: FDA-Public Use
  Company Number: PHHY2014BR101723

PATIENT
  Age: 70 Year
  Sex: Male

DRUGS (3)
  1. EXELON PATCH [Suspect]
     Active Substance: RIVASTIGMINE
     Indication: MEMORY IMPAIRMENT
     Dosage: 4.6 MG, QHS (PATCH 5 CM2 EVERY NIGHT)
     Route: 062
     Dates: start: 2012, end: 2013
  2. PROLOPA [Suspect]
     Active Substance: BENSERAZIDE\LEVODOPA
     Indication: PARKINSON^S DISEASE
     Dosage: 1.25 MG, DAILY (1/4 TABLET AT 12 PM, 1/4 TABLET IN THE AFTERNOON AND 3/4 TABLET AT NIGHT)
     Route: 048
  3. SIFROL [Suspect]
     Active Substance: PRAMIPEXOLE
     Indication: PARKINSON^S DISEASE
     Dosage: 1.5 DF, DAILY (HALF TABLET AT LUNCH AND 1 TABLET AT NIGHT)

REACTIONS (9)
  - Pain [Unknown]
  - Fall [Unknown]
  - Pulmonary thrombosis [Recovered/Resolved]
  - Diabetes mellitus inadequate control [Unknown]
  - Application site pruritus [Recovered/Resolved]
  - Gait disturbance [Recovered/Resolved]
  - Dizziness [Recovered/Resolved]
  - Application site mass [Recovered/Resolved]
  - Application site haemorrhage [Recovered/Resolved]

NARRATIVE: CASE EVENT DATE: 201310
